FAERS Safety Report 4532245-4 (Version None)
Quarter: 2004Q4

REPORT INFORMATION
  Report Type: 
  Country: None (occurrence: None)
  Receive Date: 20041220
  Receipt Date: 20041210
  Transmission Date: 20050328
  Serious: Yes (Death)
  Sender: FDA-Public Use
  Company Number: IT-ABBOTT-04P-083-0283801-00

PATIENT

DRUGS (1)
  1. VERAPAMIL [Suspect]
     Indication: PROPHYLAXIS

REACTIONS (1)
  - CARDIOVASCULAR DISORDER [None]
